FAERS Safety Report 8561845-X (Version None)
Quarter: 2012Q3

REPORT INFORMATION
  Report Type: 
  Country: None (occurrence: None)
  Receive Date: 20120802
  Receipt Date: 20120112
  Transmission Date: 20120928
  Serious: Yes (Other)
  Sender: FDA-Public Use
  Company Number: US-ROCHE-1089823

PATIENT
  Sex: Female

DRUGS (2)
  1. XOLAIR [Suspect]
     Dates: end: 20120511
  2. XOLAIR [Suspect]
     Indication: ASTHMA
     Dates: start: 20080102, end: 20090301

REACTIONS (1)
  - RESPIRATORY DISORDER [None]
